FAERS Safety Report 10479346 (Version 2)
Quarter: 2014Q4

REPORT INFORMATION
  Report Type: Report from Study
  Country: US (occurrence: US)
  Receive Date: 20140926
  Receipt Date: 20141015
  Transmission Date: 20150528
  Serious: No
  Sender: FDA-Public Use
  Company Number: US-ELI_LILLY_AND_COMPANY-US201409008999

PATIENT
  Age: 87 Year
  Sex: Male

DRUGS (13)
  1. LOSARTAN [Concomitant]
     Active Substance: LOSARTAN
  2. TERIPARATIDE [Suspect]
     Active Substance: TERIPARATIDE
     Indication: OSTEOPOROSIS
  3. CITRACAL                           /00751520/ [Concomitant]
  4. PRAVACHOL [Concomitant]
     Active Substance: PRAVASTATIN SODIUM
  5. TERIPARATIDE [Suspect]
     Active Substance: TERIPARATIDE
     Indication: COMPRESSION FRACTURE
     Dosage: UNK, QD
     Route: 065
     Dates: start: 201310
  6. TERIPARATIDE [Suspect]
     Active Substance: TERIPARATIDE
     Indication: OSTEOPENIA
  7. VALIUM [Concomitant]
     Active Substance: DIAZEPAM
  8. ICAPS [Concomitant]
     Active Substance: MINERALS\VITAMINS
  9. VITAMIN D [Concomitant]
     Active Substance: CHOLECALCIFEROL
  10. SECTRAL [Concomitant]
     Active Substance: ACEBUTOLOL HYDROCHLORIDE
  11. WARFARIN [Concomitant]
     Active Substance: WARFARIN
  12. CALCIUM [Concomitant]
     Active Substance: CALCIUM
  13. COLACE [Concomitant]
     Active Substance: DOCUSATE SODIUM

REACTIONS (1)
  - Bone density decreased [Not Recovered/Not Resolved]

NARRATIVE: CASE EVENT DATE: 20140924
